FAERS Safety Report 6857197-3 (Version None)
Quarter: 2010Q3

REPORT INFORMATION
  Report Type: 
  Country: None (occurrence: None)
  Receive Date: 20100719
  Receipt Date: 20100709
  Transmission Date: 20110219
  Serious: Yes (Other)
  Sender: FDA-Public Use
  Company Number: US-PFIZER INC-2010086411

PATIENT

DRUGS (1)
  1. CARDURA [Suspect]
     Indication: HYPERTENSION

REACTIONS (1)
  - HALLUCINATION [None]
